FAERS Safety Report 11825655 (Version 1)
Quarter: 2015Q4

REPORT INFORMATION
  Report Type: Spontaneous
  Country: US (occurrence: US)
  Receive Date: 20151211
  Receipt Date: 20151211
  Transmission Date: 20160305
  Serious: No
  Sender: FDA-Public Use
  Company Number: US-JNJFOC-20150718743

PATIENT
  Age: 80 Year
  Sex: Male

DRUGS (20)
  1. FLOMAX [Concomitant]
     Active Substance: TAMSULOSIN HYDROCHLORIDE
  2. CYCLOBENZAPRINE [Concomitant]
     Active Substance: CYCLOBENZAPRINE
  3. TAMSULOSIN [Concomitant]
     Active Substance: TAMSULOSIN
  4. CILOSTAZOL. [Concomitant]
     Active Substance: CILOSTAZOL
  5. MAGNESIUM [Concomitant]
     Active Substance: MAGNESIUM
  6. AMLODIPINE [Concomitant]
     Active Substance: AMLODIPINE BESYLATE
     Dates: start: 2015, end: 2015
  7. PROVENTIL [Concomitant]
     Active Substance: ALBUTEROL
  8. IMBRUVICA [Suspect]
     Active Substance: IBRUTINIB
     Indication: CHRONIC LYMPHOCYTIC LEUKAEMIA
     Route: 048
     Dates: start: 20150417
  9. NORCO [Concomitant]
     Active Substance: ACETAMINOPHEN\HYDROCODONE BITARTRATE
  10. ATENOLOL. [Concomitant]
     Active Substance: ATENOLOL
  11. QVAR [Concomitant]
     Active Substance: BECLOMETHASONE DIPROPIONATE
  12. ACIPHEX [Concomitant]
     Active Substance: RABEPRAZOLE SODIUM
  13. HYDROCHLOROTHIAZIDE. [Concomitant]
     Active Substance: HYDROCHLOROTHIAZIDE
  14. SIMCOR [Concomitant]
     Active Substance: NIACIN\SIMVASTATIN
  15. AVODART [Concomitant]
     Active Substance: DUTASTERIDE
  16. ASPIRIN. [Concomitant]
     Active Substance: ASPIRIN
  17. ATROVENT [Concomitant]
     Active Substance: IPRATROPIUM BROMIDE
  18. DIOVAN [Concomitant]
     Active Substance: VALSARTAN
  19. MULTIVITAMINS [Concomitant]
     Active Substance: VITAMINS
  20. FELODIPINE. [Concomitant]
     Active Substance: FELODIPINE

REACTIONS (7)
  - Diarrhoea [Recovered/Resolved]
  - Contusion [Not Recovered/Not Resolved]
  - Atrial fibrillation [Not Recovered/Not Resolved]
  - Decreased appetite [Recovered/Resolved]
  - Drug dispensing error [Unknown]
  - Epistaxis [Recovered/Resolved]
  - Muscle spasms [Recovering/Resolving]

NARRATIVE: CASE EVENT DATE: 2015
